FAERS Safety Report 18335575 (Version 1)
Quarter: 2020Q4

REPORT INFORMATION
  Report Type: Spontaneous
  Country: US (occurrence: US)
  Receive Date: 20201001
  Receipt Date: 20201001
  Transmission Date: 20210113
  Serious: No
  Sender: FDA-Public Use
  Company Number: US-ABBVIE-20K-163-3535918-00

PATIENT
  Sex: Female

DRUGS (5)
  1. ZIDOVUDINE. [Suspect]
     Active Substance: ZIDOVUDINE
     Indication: HIV INFECTION
     Dosage: 1 MG/KG/HR
     Route: 042
     Dates: start: 20200729, end: 20200729
  2. ATAZANAVIR. [Suspect]
     Active Substance: ATAZANAVIR
     Dosage: 400 MG/DAY
     Route: 048
     Dates: start: 20200522
  3. TENOFOVIR DISOPROXIL FUMARATE+EMTRICITABINE [Suspect]
     Active Substance: EMTRICITABINE\TENOFOVIR DISOPROXIL FUMARATE
     Indication: HIV INFECTION
     Dosage: 500 MG/DAY
     Route: 042
     Dates: start: 20191127
  4. ATAZANAVIR. [Suspect]
     Active Substance: ATAZANAVIR
     Indication: HIV INFECTION
     Dosage: 300 MG/DAY
     Route: 048
     Dates: start: 20191127, end: 20200521
  5. RITONAVIR. [Suspect]
     Active Substance: RITONAVIR
     Indication: HIV INFECTION
     Dosage: 100 MG/DAY
     Route: 048
     Dates: start: 20191127

REACTIONS (2)
  - Live birth [Unknown]
  - Maternal exposure during pregnancy [Unknown]
